FAERS Safety Report 8769408 (Version 1)
Quarter: 2012Q4

REPORT INFORMATION
  Report Type: 
  Country: NL (occurrence: NL)
  Receive Date: 20120905
  Receipt Date: 20120905
  Transmission Date: 20130627
  Serious: Yes (Other)
  Sender: FDA-Public Use
  Company Number: NL-MYLANLABS-2012S1017581

PATIENT
  Age: 12 Year
  Sex: Female

DRUGS (1)
  1. VALPROIC ACID [Suspect]
     Indication: PARTIAL SEIZURES
     Dosage: 30mg/kg/day before complete withdrawal over 6w period
     Route: 065

REACTIONS (7)
  - Withdrawal syndrome [Recovered/Resolved]
  - Psychotic disorder [Recovered/Resolved]
  - Tachyphrenia [Recovered/Resolved]
  - Negativism [Recovered/Resolved]
  - Agitation [Recovered/Resolved]
  - Hallucination, auditory [Recovered/Resolved]
  - Hallucination, visual [Recovered/Resolved]
